FAERS Safety Report 4451051-2 (Version None)
Quarter: 2004Q3

REPORT INFORMATION
  Report Type: 
  Country: None (occurrence: None)
  Receive Date: 20040812
  Receipt Date: 20040426
  Transmission Date: 20050211
  Serious: No
  Sender: FDA-Public Use
  Company Number: USA040465854

PATIENT
  Age: 64 Year
  Sex: Male
  Weight: 65 kg

DRUGS (9)
  1. CIALIS [Suspect]
     Dosage: 10 MG
     Dates: start: 20040424
  2. DIOVAN [Concomitant]
  3. LIPITOR [Concomitant]
  4. ATIVAN [Concomitant]
  5. VITAMIN C [Concomitant]
  6. VITAMIN E [Concomitant]
  7. ASPIRIN [Concomitant]
  8. BENADRYL [Concomitant]
  9. AMBIEN [Concomitant]

REACTIONS (1)
  - THERAPEUTIC RESPONSE DECREASED [None]
